FAERS Safety Report 6049296-3 (Version None)
Quarter: 2009Q1

REPORT INFORMATION
  Report Type: 
  Country: None (occurrence: None)
  Receive Date: 20090123
  Receipt Date: 20090112
  Transmission Date: 20090719
  Serious: Yes (Hospitalization, Other)
  Sender: FDA-Public Use
  Company Number: US-PFIZER INC-2008085731

PATIENT
  Sex: Female
  Weight: 54 kg

DRUGS (7)
  1. DILANTIN [Suspect]
     Indication: CONVULSION
     Route: 048
     Dates: start: 20070101, end: 20070717
  2. NAPROSYN [Suspect]
  3. KEPPRA [Concomitant]
     Indication: CONVULSION
     Route: 048
  4. POTASSIUM CHLORIDE [Concomitant]
  5. BUSPAR [Concomitant]
  6. PREMARIN [Concomitant]
  7. NORVASC [Concomitant]
     Indication: HYPERTENSION

REACTIONS (5)
  - CHEST PAIN [None]
  - HIP FRACTURE [None]
  - RESPIRATORY FAILURE [None]
  - STEVENS-JOHNSON SYNDROME [None]
  - TOXIC EPIDERMAL NECROLYSIS [None]
